FAERS Safety Report 5872065-1 (Version None)
Quarter: 2008Q3

REPORT INFORMATION
  Report Type: 
  Country: None (occurrence: None)
  Receive Date: 20080902
  Receipt Date: 20080116
  Transmission Date: 20090109
  Serious: Yes (Death)
  Sender: FDA-Public Use
  Company Number: 2008S1000516

PATIENT
  Age: 40 Year
  Sex: Male

DRUGS (15)
  1. PHOSPHOSODA FLAVOR NOT SPECIFIED (SODIUM PHOSPHATE DIBASIC/SODIUM PHOS [Suspect]
     Indication: CONSTIPATION
     Dosage: 45 ML; 169; PO; X1
     Route: 048
  2. FLEET ENEMA (SODIUM PHOSPHATE) (SODIUM PHOSPHATE DIBASIC/SODIUM PHOSPH [Concomitant]
  3. CIPROFLOXACIN [Concomitant]
  4. ALOPURINOL (BEING QUERIED) [Concomitant]
  5. PERINDOPRIL ERBUMINE [Concomitant]
  6. INDAPAMIDE [Concomitant]
  7. MOXON (MOXONIDINE) [Concomitant]
  8. RANITIDINE [Concomitant]
  9. ESTIVAN (EBASTINE) [Concomitant]
  10. MOVICOL [Concomitant]
  11. PRIMPERAN TAB [Concomitant]
  12. LACTULOSE [Concomitant]
  13. FRAXIPARINE (HEPARIN-FRACTION, CALCIUM SALT) [Concomitant]
  14. LYSOMUCIL (ACETYLCYSTEINE) [Concomitant]
  15. BACLOFEN [Concomitant]

REACTIONS (3)
  - CARDIAC ARREST [None]
  - PYREXIA [None]
  - RENAL FAILURE ACUTE [None]
